FAERS Safety Report 12094531 (Version 1)
Quarter: 2016Q1

REPORT INFORMATION
  Report Type: Spontaneous
  Country: US (occurrence: US)
  Receive Date: 20160219
  Receipt Date: 20160219
  Transmission Date: 20160526
  Serious: No
  Sender: FDA-Public Use
  Company Number: US-APOTEX-2015AP015367

PATIENT
  Sex: Female

DRUGS (1)
  1. TIMOLOL MALEATE OPHTHALMIC SOLUTION USP [Suspect]
     Active Substance: TIMOLOL MALEATE
     Indication: GLAUCOMA
     Dosage: 1 DROP IN EACH EYE IN THE MORNING, AND 1 DROP IN EACH EYE AT NIGHT
     Route: 047
     Dates: end: 20151212

REACTIONS (4)
  - Product contamination [Not Recovered/Not Resolved]
  - Eye infection viral [Not Recovered/Not Resolved]
  - Conjunctivitis viral [Not Recovered/Not Resolved]
  - Lacrimation increased [Not Recovered/Not Resolved]
